FAERS Safety Report 6930340-3 (Version None)
Quarter: 2010Q3

REPORT INFORMATION
  Report Type: 
  Country: None (occurrence: None)
  Receive Date: 20100818
  Receipt Date: 20100810
  Transmission Date: 20110219
  Serious: Yes (Other)
  Sender: FDA-Public Use
  Company Number: US-ROCHE-719304

PATIENT
  Sex: Female

DRUGS (2)
  1. PEGASYS [Suspect]
     Indication: HEPATITIS C
     Route: 065
     Dates: start: 20100804
  2. RIBAVIRIN [Suspect]
     Indication: HEPATITIS C
     Dosage: DOSE UNCERTAIN
     Route: 065
     Dates: start: 20100804

REACTIONS (5)
  - DIARRHOEA [None]
  - IMMOBILE [None]
  - LETHARGY [None]
  - TUNNEL VISION [None]
  - VISUAL ACUITY REDUCED [None]
